FAERS Safety Report 5903318-6 (Version None)
Quarter: 2008Q3

REPORT INFORMATION
  Report Type: 
  Country: None (occurrence: None)
  Receive Date: 20080930
  Receipt Date: 20080925
  Transmission Date: 20090109
  Serious: Yes (Hospitalization)
  Sender: FDA-Public Use
  Company Number: B0539156A

PATIENT
  Age: 50 Year
  Sex: Female

DRUGS (3)
  1. LAMICTAL [Suspect]
     Indication: BIPOLAR DISORDER
     Dosage: 300MG PER DAY
     Route: 065
     Dates: start: 20060101
  2. EUTIROX [Concomitant]
     Route: 065
  3. THYROID EXTRACT [Concomitant]
     Route: 065

REACTIONS (2)
  - PLEUROPERICARDITIS [None]
  - RESPIRATORY DISORDER [None]
